FAERS Safety Report 7952417-6 (Version None)
Quarter: 2011Q4

REPORT INFORMATION
  Report Type: 
  Country: None (occurrence: None)
  Receive Date: 20111201
  Receipt Date: 20111122
  Transmission Date: 20120403
  Serious: Yes (Hospitalization)
  Sender: FDA-Public Use
  Company Number: US-GLAXOSMITHKLINE-A0954338A

PATIENT
  Age: 62 Year
  Sex: Male

DRUGS (15)
  1. VASOTEC [Concomitant]
  2. GLUCOPHAGE [Concomitant]
  3. NOVOLOG [Concomitant]
  4. AVANDIA [Suspect]
     Indication: TYPE 2 DIABETES MELLITUS
     Route: 048
     Dates: start: 20040201, end: 20050501
  5. VITAMIN D [Concomitant]
  6. LOPID [Concomitant]
  7. SYNTHROID [Concomitant]
  8. NORVASC [Concomitant]
  9. LOVASTATIN [Concomitant]
  10. SOTALOL HCL [Concomitant]
  11. LANTUS [Concomitant]
  12. SPIRIVA [Concomitant]
  13. LASIX [Concomitant]
  14. VENTOLIN [Concomitant]
  15. FLOVENT [Concomitant]

REACTIONS (4)
  - TACHYCARDIA [None]
  - IMPLANTABLE DEFIBRILLATOR INSERTION [None]
  - CARDIAC DISORDER [None]
  - WEIGHT INCREASED [None]
